FAERS Safety Report 7335725-1 (Version None)
Quarter: 2011Q1

REPORT INFORMATION
  Report Type: 
  Country: None (occurrence: None)
  Receive Date: 20110307
  Receipt Date: 20110217
  Transmission Date: 20110831
  Serious: Yes (Other)
  Sender: FDA-Public Use
  Company Number: B0701422A

PATIENT
  Sex: Female

DRUGS (4)
  1. PAXIL [Suspect]
     Indication: PRODUCT USED FOR UNKNOWN INDICATION
     Dosage: 40MG PER DAY
     Route: 048
  2. CHLORPROTHIXENE [Concomitant]
  3. SULPIRIDE [Concomitant]
  4. FLUPENTIXOL [Concomitant]

REACTIONS (2)
  - DEPRESSION [None]
  - EUPHORIC MOOD [None]
